FAERS Safety Report 22295204 (Version 2)
Quarter: 2023Q2

REPORT INFORMATION
  Report Type: Spontaneous
  Country: US (occurrence: None)
  Receive Date: 20230508
  Receipt Date: 20230517
  Transmission Date: 20230722
  Serious: Yes (Hospitalization)
  Sender: FDA-Public Use
  Company Number: US-FARMAPROD-202211-2188

PATIENT
  Sex: Female

DRUGS (16)
  1. OXERVATE [Suspect]
     Active Substance: CENEGERMIN-BKBJ
     Indication: Neurotrophic keratopathy
     Route: 047
     Dates: start: 20221019, end: 2022
  2. OXERVATE [Suspect]
     Active Substance: CENEGERMIN-BKBJ
     Route: 047
     Dates: start: 20230327
  3. HYDROXYCHLOROQUINE SULFATE [Concomitant]
     Active Substance: HYDROXYCHLOROQUINE SULFATE
  4. PREDNISONE [Concomitant]
     Active Substance: PREDNISONE
  5. CALCIUM [Concomitant]
     Active Substance: CALCIUM
  6. TYLENOL EXTRA STRENGTH [Concomitant]
     Active Substance: ACETAMINOPHEN
  7. FLAREX [Concomitant]
     Active Substance: FLUOROMETHOLONE ACETATE
  8. FAMOTIDINE [Concomitant]
     Active Substance: FAMOTIDINE
  9. GABAPENTIN [Concomitant]
     Active Substance: GABAPENTIN
  10. CEQUA [Concomitant]
     Active Substance: CYCLOSPORINE
  11. TRAMADOL HCL [Concomitant]
     Active Substance: TRAMADOL HYDROCHLORIDE
  12. CIPROFLOXACIN HYDROCHLORIDE [Concomitant]
     Active Substance: CIPROFLOXACIN HYDROCHLORIDE
  13. METRONIDAZOLE [Concomitant]
     Active Substance: METRONIDAZOLE
  14. INSULIN ASPART [Concomitant]
     Active Substance: INSULIN ASPART
     Dosage: VIAL
  15. PANTOPRAZOLE SODIUM [Concomitant]
     Active Substance: PANTOPRAZOLE SODIUM
     Dosage: DELAYED RELEASE
  16. INSULIN GLARGINE SOLOSTAR [Concomitant]
     Active Substance: INSULIN GLARGINE

REACTIONS (9)
  - Pancreatic disorder [Unknown]
  - Intentional product misuse [Unknown]
  - Cough [Unknown]
  - Bronchitis [Unknown]
  - Pharyngitis streptococcal [Unknown]
  - COVID-19 [Unknown]
  - Illness [Unknown]
  - Fatigue [Unknown]
  - Wrong technique in product usage process [Unknown]

NARRATIVE: CASE EVENT DATE: 20230101
